FAERS Safety Report 16362939 (Version 1)
Quarter: 2019Q2

REPORT INFORMATION
  Report Type: Spontaneous
  Country: US (occurrence: US)
  Receive Date: 20190528
  Receipt Date: 20190528
  Transmission Date: 20190711
  Serious: Yes (Other)
  Sender: FDA-Public Use
  Company Number: PHHY2019US117730

PATIENT
  Age: 56 Year
  Sex: Female
  Weight: 57 kg

DRUGS (4)
  1. HYDROXYCHLOROQUINE [Suspect]
     Active Substance: HYDROXYCHLOROQUINE
     Indication: SJOGREN^S SYNDROME
     Dosage: 400 MG, QD FOR 2 YEARS 10 MONTHS (DAILY DOSE: 7.01 MG/KG AND TOTAL CUMULATIVE DOSE 402 G)
     Route: 065
  2. ANASTROZOLE. [Concomitant]
     Active Substance: ANASTROZOLE
     Indication: INVASIVE LOBULAR BREAST CARCINOMA
     Route: 065
  3. DOCETAXEL. [Concomitant]
     Active Substance: DOCETAXEL
     Indication: INVASIVE LOBULAR BREAST CARCINOMA
     Dosage: 21-DAY CYCLES
     Route: 065
  4. CYCLOPHOSPHAMIDE. [Concomitant]
     Active Substance: CYCLOPHOSPHAMIDE
     Indication: INVASIVE LOBULAR BREAST CARCINOMA
     Dosage: 21-DAY CYCLES
     Route: 065

REACTIONS (2)
  - Product use in unapproved indication [Unknown]
  - Retinal toxicity [Recovering/Resolving]
